FAERS Safety Report 7386107-8 (Version None)
Quarter: 2011Q1

REPORT INFORMATION
  Report Type: 
  Country: None (occurrence: None)
  Receive Date: 20110331
  Receipt Date: 20110325
  Transmission Date: 20110831
  Serious: Yes (Death)
  Sender: FDA-Public Use
  Company Number: FR-SANOFI-AVENTIS-2011SA011068

PATIENT
  Age: 54 Year
  Sex: Male

DRUGS (2)
  1. STILNOX [Suspect]
     Indication: INSOMNIA
     Route: 048
     Dates: start: 20060501, end: 20060801
  2. ZYBAN [Interacting]
     Indication: TOBACCO WITHDRAWAL SYMPTOMS
     Route: 065

REACTIONS (5)
  - TACHYCARDIA [None]
  - AFFECTIVE DISORDER [None]
  - MYOCARDIAL INFARCTION [None]
  - DRUG INTERACTION [None]
  - ABNORMAL BEHAVIOUR [None]
